FAERS Safety Report 19554715 (Version 1)
Quarter: 2021Q3

REPORT INFORMATION
  Report Type: Spontaneous
  Country: US (occurrence: US)
  Receive Date: 20210715
  Receipt Date: 20210715
  Transmission Date: 20211014
  Serious: No
  Sender: FDA-Public Use
  Company Number: US-ACCORD-226961

PATIENT
  Sex: Female

DRUGS (2)
  1. LETROZOLE. [Suspect]
     Active Substance: LETROZOLE
     Indication: PRODUCT USED FOR UNKNOWN INDICATION
     Dosage: 30 COUNT BOTTLE ,STRENGTH: 2.5MG
  2. ANASTROZOLE. [Suspect]
     Active Substance: ANASTROZOLE
     Indication: NEOPLASM MALIGNANT
     Dosage: STRENGTH: 1 MG,30 COUNT BOTTLE ONCE A DAY
     Route: 048
     Dates: start: 2012

REACTIONS (1)
  - Intercepted product dispensing error [Unknown]
